FAERS Safety Report 5899844-9 (Version None)
Quarter: 2008Q3

REPORT INFORMATION
  Report Type: 
  Country: None (occurrence: None)
  Receive Date: 20080926
  Receipt Date: 20080705
  Transmission Date: 20090109
  Serious: No
  Sender: FDA-Public Use
  Company Number: US-BAYER-200828289NA

PATIENT
  Age: 52 Year
  Sex: Female
  Weight: 69 kg

DRUGS (4)
  1. CLIMARA [Suspect]
     Indication: MENOPAUSAL SYMPTOMS
     Route: 062
  2. DIOVAN [Concomitant]
     Indication: HYPERTENSION
  3. ARMOUR THYROID [Concomitant]
     Indication: HYPOTHYROIDISM
  4. PROMETRIUM [Concomitant]
     Indication: DRUG USE FOR UNKNOWN INDICATION

REACTIONS (8)
  - APPLICATION SITE ERYTHEMA [None]
  - HYPERHIDROSIS [None]
  - INSOMNIA [None]
  - MENOPAUSAL SYMPTOMS [None]
  - MENTAL IMPAIRMENT [None]
  - MOOD SWINGS [None]
  - NIGHT SWEATS [None]
  - VISUAL IMPAIRMENT [None]
